FAERS Safety Report 6126302-9 (Version None)
Quarter: 2009Q1

REPORT INFORMATION
  Report Type: 
  Country: None (occurrence: None)
  Receive Date: 20090320
  Receipt Date: 20090309
  Transmission Date: 20090719
  Serious: Yes (Hospitalization, Other)
  Sender: FDA-Public Use
  Company Number: US-AVENTIS-200910592US

PATIENT
  Sex: Male
  Weight: 74.84 kg

DRUGS (8)
  1. LOVENOX [Suspect]
     Indication: PROPHYLAXIS
     Route: 058
     Dates: start: 20081228, end: 20090102
  2. LOVENOX [Suspect]
     Route: 058
     Dates: start: 20081228, end: 20090102
  3. LOVENOX [Suspect]
     Route: 058
     Dates: start: 20081228, end: 20090102
  4. PROTONIX [Concomitant]
     Dates: start: 20040101
  5. COUMADIN [Concomitant]
     Dates: start: 20040101, end: 20081227
  6. ALTACE [Concomitant]
     Dates: start: 20040101
  7. CARDIZEM [Concomitant]
     Dates: start: 20040101, end: 20081230
  8. LIPITOR [Concomitant]
     Dates: start: 20040101

REACTIONS (1)
  - POST PROCEDURAL HAEMORRHAGE [None]
